FAERS Safety Report 15083854 (Version 2)
Quarter: 2023Q1

REPORT INFORMATION
  Report Type: Spontaneous
  Country: CZ (occurrence: CZ)
  Receive Date: 20180628
  Receipt Date: 20230314
  Transmission Date: 20230417
  Serious: Yes (Hospitalization)
  Sender: FDA-Public Use
  Company Number: CZ-MYLANLABS-2018M1045977

PATIENT
  Age: 62 Year
  Sex: Male

DRUGS (5)
  1. WARFARIN [Suspect]
     Active Substance: WARFARIN
     Indication: Deep vein thrombosis
     Dosage: UNK
     Route: 065
  2. PARICALCITOL [Suspect]
     Active Substance: PARICALCITOL
     Indication: Hyperparathyroidism secondary
     Dosage: 1 MICROGRAM, QD
     Route: 048
  3. CALCIUM [Suspect]
     Active Substance: CALCIUM
     Indication: Hyperparathyroidism secondary
     Dosage: 1000 MILLIGRAM, QD
     Route: 065
  4. SODIUM BICARBONATE [Concomitant]
     Active Substance: SODIUM BICARBONATE
     Indication: Product used for unknown indication
     Dosage: UNK
     Route: 065
  5. ASPIRIN [Concomitant]
     Active Substance: ASPIRIN
     Indication: Product used for unknown indication
     Dosage: UNK
     Route: 065

REACTIONS (8)
  - Calciphylaxis [Recovered/Resolved]
  - Skin necrosis [Recovered/Resolved]
  - Skin ulcer [Recovered/Resolved]
  - Skin disorder [Recovered/Resolved]
  - Dyspnoea [Recovered/Resolved]
  - Azotaemia [Recovered/Resolved]
  - Bedridden [Recovered/Resolved]
  - Immobile [Recovered/Resolved]
